FAERS Safety Report 8307877-8 (Version None)
Quarter: 2012Q2

REPORT INFORMATION
  Report Type: 
  Country: None (occurrence: None)
  Receive Date: 20120424
  Receipt Date: 20120413
  Transmission Date: 20120825
  Serious: Yes (Hospitalization)
  Sender: FDA-Public Use
  Company Number: US-JNJFOC-20120406605

PATIENT
  Sex: Male
  Weight: 72.58 kg

DRUGS (2)
  1. ZYTIGA [Suspect]
     Indication: PROSTATE CANCER
     Route: 048
     Dates: start: 20120201
  2. FLOMAX [Concomitant]
     Route: 065

REACTIONS (6)
  - TRANSURETHRAL PROSTATECTOMY [None]
  - SOMNOLENCE [None]
  - PNEUMONIA ASPIRATION [None]
  - HEART RATE INCREASED [None]
  - HYPOKINESIA [None]
  - GASTROSTOMY TUBE INSERTION [None]
